FAERS Safety Report 9612151 (Version 2)
Quarter: 2014Q1

REPORT INFORMATION
  Report Type: Spontaneous
  Country: US (occurrence: US)
  Receive Date: 20131010
  Receipt Date: 20140113
  Transmission Date: 20141002
  Serious: No
  Sender: FDA-Public Use
  Company Number: US-ASTELLAS-2013US009890

PATIENT
  Age: 75 Year
  Sex: Female

DRUGS (3)
  1. MYRBETRIQ [Suspect]
     Indication: NOCTURIA
     Dosage: 25 MG, UID/QD
     Route: 048
     Dates: start: 20130915, end: 20130915
  2. MYRBETRIQ [Suspect]
     Indication: MIXED INCONTINENCE
     Dosage: 25 MG, UID/QD
     Route: 048
     Dates: start: 20130917, end: 20131021
  3. MYRBETRIQ [Suspect]
     Indication: URGE INCONTINENCE

REACTIONS (4)
  - Off label use [Unknown]
  - Drug dose omission [Unknown]
  - Muscle spasms [Not Recovered/Not Resolved]
  - Diarrhoea [Not Recovered/Not Resolved]
